FAERS Safety Report 11272937 (Version 1)
Quarter: 2015Q3

REPORT INFORMATION
  Report Type: Spontaneous
  Country: US (occurrence: None)
  Receive Date: 20150714
  Receipt Date: 20150714
  Transmission Date: 20151125
  Serious: No
  Sender: FDA-Public Use
  Company Number: None

PATIENT
  Age: 55 Year
  Sex: Female
  Weight: 72.58 kg

DRUGS (1)
  1. SENOKOT [Suspect]
     Active Substance: SENNOSIDES
     Indication: CONSTIPATION
     Dates: start: 20150712, end: 20150712

REACTIONS (5)
  - Pain [None]
  - Diarrhoea [None]
  - Mucous stools [None]
  - Frequent bowel movements [None]
  - Defaecation urgency [None]

NARRATIVE: CASE EVENT DATE: 20150713
